FAERS Safety Report 14561813 (Version 2)
Quarter: 2018Q1

REPORT INFORMATION
  Report Type: Spontaneous
  Country: US (occurrence: US)
  Receive Date: 20180222
  Receipt Date: 20180314
  Transmission Date: 20180509
  Serious: Yes (Death, Hospitalization, Disabling)
  Sender: FDA-Public Use
  Company Number: US-SA-2018SA048806

PATIENT
  Age: 61 Year
  Sex: Male

DRUGS (1)
  1. RENVELA [Suspect]
     Active Substance: SEVELAMER CARBONATE
     Indication: RENAL FAILURE
     Route: 048
     Dates: start: 20180113, end: 20180121

REACTIONS (2)
  - Death [Fatal]
  - Disability [Unknown]

NARRATIVE: CASE EVENT DATE: 20180122
